FAERS Safety Report 8251135-7 (Version None)
Quarter: 2012Q2

REPORT INFORMATION
  Report Type: 
  Country: None (occurrence: None)
  Receive Date: 20120402
  Receipt Date: 20120322
  Transmission Date: 20120825
  Serious: Yes (Other)
  Sender: FDA-Public Use
  Company Number: CA-JNJFOC-20120312263

PATIENT
  Sex: Male
  Weight: 68 kg

DRUGS (3)
  1. REMICADE [Suspect]
     Indication: CROHN'S DISEASE
     Route: 042
     Dates: start: 20120209
  2. REMICADE [Suspect]
     Dosage: 68TH INFUSION
     Route: 042
     Dates: start: 20120322
  3. REMICADE [Suspect]
     Route: 042

REACTIONS (1)
  - VOCAL CORD THICKENING [None]
